FAERS Safety Report 12160649 (Version 2)
Quarter: 2016Q2

REPORT INFORMATION
  Report Type: Spontaneous
  Country: US (occurrence: US)
  Receive Date: 20160308
  Receipt Date: 20160530
  Transmission Date: 20160815
  Serious: Yes (Hospitalization, Other)
  Sender: FDA-Public Use
  Company Number: US-AMGEN-USASP2016027189

PATIENT
  Age: 32 Year
  Sex: Female

DRUGS (3)
  1. ZARXIO [Suspect]
     Active Substance: FILGRASTIM-SNDZ
     Indication: IDIOPATHIC NEUTROPENIA
     Dosage: UNK
     Route: 065
     Dates: start: 2016
  2. NEUPOGEN [Suspect]
     Active Substance: FILGRASTIM
     Indication: IDIOPATHIC NEUTROPENIA
     Dosage: 300 MUG/ML, QWK
     Route: 065
  3. GRANIX [Suspect]
     Active Substance: TBO-FILGRASTIM
     Indication: IDIOPATHIC NEUTROPENIA
     Dosage: UNK
     Route: 065
     Dates: start: 201602, end: 2016

REACTIONS (5)
  - Neutrophil count decreased [Unknown]
  - Maternal exposure during pregnancy [Unknown]
  - Stomatitis [Unknown]
  - Salmonellosis [Unknown]
  - No therapeutic response [Unknown]

NARRATIVE: CASE EVENT DATE: 2016
